FAERS Safety Report 9278351 (Version 1)
Quarter: 2013Q2

REPORT INFORMATION
  Report Type: Report from Study
  Country: BR (occurrence: BR)
  Receive Date: 20130508
  Receipt Date: 20130508
  Transmission Date: 20140414
  Serious: Yes (Other)
  Sender: FDA-Public Use
  Company Number: BR-BAYER-2013-055269

PATIENT
  Age: 46 Year
  Sex: Female

DRUGS (2)
  1. BETAFERON [Suspect]
     Indication: MULTIPLE SCLEROSIS
     Dosage: 1 ML, QOD
     Route: 058
     Dates: start: 2011, end: 20130428
  2. FOSTER [Concomitant]
     Indication: ASTHMA
     Dosage: UNK
     Route: 055
     Dates: start: 2008

REACTIONS (3)
  - Skin necrosis [Not Recovered/Not Resolved]
  - Skin discolouration [Not Recovered/Not Resolved]
  - Skin wound [Not Recovered/Not Resolved]
